FAERS Safety Report 23849803 (Version 1)
Quarter: 2024Q2

REPORT INFORMATION
  Report Type: Spontaneous
  Country: US (occurrence: None)
  Receive Date: 20240512
  Receipt Date: 20240512
  Transmission Date: 20240716
  Serious: Yes (unspecified)
  Sender: FDA-Public Use
  Company Number: None

PATIENT
  Age: 19 Year
  Sex: Female
  Weight: 58.95 kg

DRUGS (6)
  1. QELBREE [Suspect]
     Active Substance: VILOXAZINE HYDROCHLORIDE
     Indication: Attention deficit hyperactivity disorder
     Dosage: OTHER QUANTITY : 1 CAPSULE(S);?
     Route: 048
     Dates: start: 20240220, end: 20240512
  2. Clonidine 0.1mg [Concomitant]
  3. HYDROXYZINE [Concomitant]
     Active Substance: HYDROXYZINE HYDROCHLORIDE
  4. B12 supplement [Concomitant]
  5. Vitamin D , [Concomitant]
  6. Zertec [Concomitant]

REACTIONS (12)
  - Mood altered [None]
  - Mania [None]
  - Adjustment disorder with depressed mood [None]
  - Paranoia [None]
  - Hallucination [None]
  - Nightmare [None]
  - Insomnia [None]
  - Suicidal ideation [None]
  - Anxiety [None]
  - Agitation [None]
  - Psychotic disorder [None]
  - Social problem [None]

NARRATIVE: CASE EVENT DATE: 20240506
